FAERS Safety Report 4847263-6 (Version None)
Quarter: 2005Q4

REPORT INFORMATION
  Report Type: 
  Country: None (occurrence: None)
  Receive Date: 20051207
  Receipt Date: 20051206
  Transmission Date: 20060501
  Serious: Yes (Hospitalization)
  Sender: FDA-Public Use
  Company Number: FR-GLAXOSMITHKLINE-B0402826A

PATIENT
  Age: 56 Year
  Sex: Female

DRUGS (8)
  1. CLAMOXYL [Suspect]
     Indication: TRACHEOBRONCHITIS
     Dosage: 2UNIT PER DAY
     Route: 048
     Dates: start: 20051031, end: 20051105
  2. MUCOMYST [Suspect]
     Indication: TRACHEOBRONCHITIS
     Route: 048
     Dates: start: 20051031
  3. SURGAM [Suspect]
     Indication: TRACHEOBRONCHITIS
     Route: 048
     Dates: start: 20051031
  4. TENORMIN [Concomitant]
  5. NIFEDIPINE [Concomitant]
  6. APROVEL [Concomitant]
  7. ELISOR [Concomitant]
  8. DIAMICRON [Concomitant]

REACTIONS (3)
  - EOSINOPHILIA [None]
  - RASH PAPULAR [None]
  - RENAL FAILURE [None]
